FAERS Safety Report 4909190-5 (Version None)
Quarter: 2006Q1

REPORT INFORMATION
  Report Type: 
  Country: None (occurrence: None)
  Receive Date: 20060213
  Receipt Date: 20051018
  Transmission Date: 20060701
  Serious: Yes (Life-Threatening)
  Sender: FDA-Public Use
  Company Number: US-GILEAD-2005-0008829

PATIENT
  Sex: Female
  Weight: 53.7 kg

DRUGS (4)
  1. EMTRICITABINE [Suspect]
     Indication: HIV INFECTION
     Dates: start: 20050627, end: 20051116
  2. ATAZANAVIR [Suspect]
     Indication: HIV INFECTION
     Dates: start: 20050627, end: 20051116
  3. DIDANOSINE [Suspect]
     Indication: HIV INFECTION
     Dates: start: 20050627, end: 20051116
  4. MOTRIN [Concomitant]
     Indication: TONSILLITIS
     Dates: start: 20050927, end: 20050928

REACTIONS (4)
  - ABORTION SPONTANEOUS [None]
  - BACTERIAL INFECTION [None]
  - DRUG EXPOSURE DURING PREGNANCY [None]
  - TONSILLITIS [None]
